FAERS Safety Report 25356408 (Version 1)
Quarter: 2025Q2

REPORT INFORMATION
  Report Type: Report from Study
  Country: US (occurrence: US)
  Receive Date: 20250526
  Receipt Date: 20250526
  Transmission Date: 20250717
  Serious: Yes (Other)
  Sender: EMD SERONO INC
  Company Number: US-Merck Healthcare KGaA-2025025118

PATIENT
  Sex: Female

DRUGS (4)
  1. REBIF [Suspect]
     Active Substance: INTERFERON BETA-1A
     Indication: Multiple sclerosis
     Dates: start: 20220221
  2. REBIF [Suspect]
     Active Substance: INTERFERON BETA-1A
  3. HYDROCORTISONE [Concomitant]
     Active Substance: HYDROCORTISONE
     Indication: Premedication
  4. TYLENOL [Concomitant]
     Active Substance: ACETAMINOPHEN
     Indication: Premedication

REACTIONS (6)
  - Diabetes mellitus [Unknown]
  - Hernia [Unknown]
  - Fibromyalgia [Unknown]
  - Spondylitis [Unknown]
  - Sleep apnoea syndrome [Unknown]
  - Neuropathy peripheral [Unknown]
